FAERS Safety Report 6769136-4 (Version None)
Quarter: 2010Q2

REPORT INFORMATION
  Report Type: 
  Country: None (occurrence: None)
  Receive Date: 20100615
  Receipt Date: 20100420
  Transmission Date: 20101027
  Serious: Yes (Hospitalization, Other)
  Sender: FDA-Public Use
  Company Number: US-BAYER-201011742NA

PATIENT
  Age: 34 Year
  Sex: Female
  Weight: 60 kg

DRUGS (10)
  1. YAZ [Suspect]
     Indication: CONTRACEPTION
     Route: 048
     Dates: start: 20070201, end: 20091108
  2. CITALOPRAM HYDROBROMIDE [Concomitant]
     Indication: DEPRESSION
  3. CYMBALTA [Concomitant]
     Indication: ANXIETY
  4. AZITHROMYCIN [Concomitant]
  5. CEFDINIR [Concomitant]
  6. ADVAIR DISKUS 100/50 [Concomitant]
  7. LOW-OGESTREL-28 [Concomitant]
     Indication: CONTRACEPTION
     Route: 065
     Dates: start: 20091109, end: 20100304
  8. LOW-OGESTREL-28 [Concomitant]
     Route: 065
     Dates: start: 19900101, end: 20060501
  9. HYDROCODONE BITARTRATE AND ACETAMINOPHEN [Concomitant]
     Dates: start: 20080701
  10. NEXIUM [Concomitant]
     Dates: start: 20080701

REACTIONS (5)
  - ABDOMINAL PAIN UPPER [None]
  - BILIARY COLIC [None]
  - CHOLECYSTITIS CHRONIC [None]
  - CHOLELITHIASIS [None]
  - NAUSEA [None]
